FAERS Safety Report 12285738 (Version 3)
Quarter: 2016Q2

REPORT INFORMATION
  Report Type: Report from Study
  Country: SG (occurrence: SG)
  Receive Date: 20160420
  Receipt Date: 20160621
  Transmission Date: 20160815
  Serious: Yes (Other)
  Sender: FDA-Public Use
  Company Number: SG-ASTELLAS-2016JP005799AA

PATIENT
  Age: 7 Year

DRUGS (1)
  1. TACROLIMUS. [Suspect]
     Active Substance: TACROLIMUS
     Indication: DERMATITIS ATOPIC
     Dosage: 10 G OF 0.1 %
     Route: 061

REACTIONS (2)
  - B-cell type acute leukaemia [Unknown]
  - Off label use [Unknown]
